FAERS Safety Report 17404383 (Version 9)
Quarter: 2020Q3

REPORT INFORMATION
  Report Type: Spontaneous
  Country: US (occurrence: US)
  Receive Date: 20200211
  Receipt Date: 20200825
  Transmission Date: 20201102
  Serious: Yes (Other)
  Sender: FDA-Public Use
  Company Number: US-ACTELION-A-NJ2020-201359

PATIENT
  Age: 55 Year
  Sex: Female
  Weight: 66.67 kg

DRUGS (1)
  1. OPSUMIT [Suspect]
     Active Substance: MACITENTAN
     Indication: PULMONARY HYPERTENSION
     Dosage: 10 MG, QD
     Route: 048

REACTIONS (22)
  - Biopsy lung [Unknown]
  - Post concussion syndrome [Unknown]
  - Vision blurred [Not Recovered/Not Resolved]
  - Nasal congestion [Unknown]
  - Head injury [Unknown]
  - Pupils unequal [Not Recovered/Not Resolved]
  - Fall [Recovered/Resolved]
  - Headache [Unknown]
  - Blood pressure fluctuation [Unknown]
  - Anaemia [Unknown]
  - Intraocular pressure increased [Not Recovered/Not Resolved]
  - Contusion [Unknown]
  - Migraine [Not Recovered/Not Resolved]
  - Exophthalmos [Not Recovered/Not Resolved]
  - Hot flush [Unknown]
  - Fatigue [Unknown]
  - Arthropathy [Unknown]
  - Arthralgia [Unknown]
  - Night sweats [Unknown]
  - Pain [Unknown]
  - Sleep disorder [Unknown]
  - Fluid retention [Unknown]

NARRATIVE: CASE EVENT DATE: 20200106
